FAERS Safety Report 23043894 (Version 2)
Quarter: 2023Q4

REPORT INFORMATION
  Report Type: Spontaneous
  Country: AU (occurrence: AU)
  Receive Date: 20231009
  Receipt Date: 20231012
  Transmission Date: 20240109
  Serious: Yes (Other)
  Sender: FDA-Public Use
  Company Number: AU-002147023-NVSC2023AU214073

PATIENT

DRUGS (1)
  1. COSENTYX [Suspect]
     Active Substance: SECUKINUMAB
     Indication: Psoriasis
     Dosage: UNK
     Route: 065
     Dates: start: 202307

REACTIONS (3)
  - Left ventricular dysfunction [Unknown]
  - Myocardial oedema [Unknown]
  - Myocarditis [Unknown]

NARRATIVE: CASE EVENT DATE: 20230801
